FAERS Safety Report 24581441 (Version 2)
Quarter: 2024Q4

REPORT INFORMATION
  Report Type: Spontaneous
  Country: JP (occurrence: JP)
  Receive Date: 20241105
  Receipt Date: 20241119
  Transmission Date: 20250115
  Serious: Yes (Other)
  Sender: OTSUKA
  Company Number: JP-OTSUKA-2024_029622

PATIENT
  Age: 92 Year
  Sex: Male

DRUGS (6)
  1. REXULTI [Suspect]
     Active Substance: BREXPIPRAZOLE
     Indication: Dementia Alzheimer^s type
     Dosage: 0.5/DAY
     Route: 048
     Dates: start: 20240927, end: 20241004
  2. REXULTI [Suspect]
     Active Substance: BREXPIPRAZOLE
     Indication: Irritability
  3. REXULTI [Suspect]
     Active Substance: BREXPIPRAZOLE
     Indication: Aggression
  4. REXULTI [Suspect]
     Active Substance: BREXPIPRAZOLE
     Indication: Dementia Alzheimer^s type
     Dosage: 1/DAY
     Route: 048
     Dates: start: 20241005, end: 20241021
  5. REXULTI [Suspect]
     Active Substance: BREXPIPRAZOLE
     Indication: Irritability
  6. REXULTI [Suspect]
     Active Substance: BREXPIPRAZOLE
     Indication: Aggression

REACTIONS (1)
  - Hepatic function abnormal [Recovered/Resolved]

NARRATIVE: CASE EVENT DATE: 20241022
